FAERS Safety Report 15186278 (Version 1)
Quarter: 2018Q3

REPORT INFORMATION
  Report Type: Report from Study
  Country: US (occurrence: US)
  Receive Date: 20180723
  Receipt Date: 20180723
  Transmission Date: 20181010
  Serious: No
  Sender: FDA-Public Use
  Company Number: US-EXELIXIS-CABO-18012073

PATIENT
  Sex: Female

DRUGS (9)
  1. COMETRIQ [Suspect]
     Active Substance: CABOZANTINIB S-MALATE
     Indication: THYROID CANCER
     Dosage: 60 MG, QD
     Route: 048
     Dates: start: 20161203
  2. VITAMIN B12 [Concomitant]
     Active Substance: CYANOCOBALAMIN
  3. COMETRIQ [Suspect]
     Active Substance: CABOZANTINIB S-MALATE
     Indication: CHOLANGIOCARCINOMA
     Dosage: 40 MG, QD
     Route: 048
  4. VITAMIN C [Concomitant]
     Active Substance: ASCORBIC ACID
  5. TUMS [Concomitant]
     Active Substance: CALCIUM CARBONATE
  6. MAGNESIUM [Concomitant]
     Active Substance: MAGNESIUM
  7. LEVOTHYROXINE. [Concomitant]
     Active Substance: LEVOTHYROXINE
  8. METOPROLOL. [Concomitant]
     Active Substance: METOPROLOL
  9. STIOLTO RESPIMAT [Concomitant]
     Active Substance: OLODATEROL HYDROCHLORIDE\TIOTROPIUM BROMIDE MONOHYDRATE

REACTIONS (4)
  - Diarrhoea [Recovering/Resolving]
  - Pharyngitis streptococcal [Unknown]
  - Abdominal discomfort [Recovered/Resolved]
  - Influenza [Unknown]

NARRATIVE: CASE EVENT DATE: 2017
